FAERS Safety Report 4334529-1 (Version None)
Quarter: 2004Q2

REPORT INFORMATION
  Report Type: 
  Country: None (occurrence: None)
  Receive Date: 20040407
  Receipt Date: 20040326
  Transmission Date: 20050107
  Serious: Yes (Death)
  Sender: FDA-Public Use
  Company Number: JP-GLAXOSMITHKLINE-B0328036A

PATIENT
  Age: 61 Year
  Sex: Male

DRUGS (5)
  1. NOGITECAN HYDROCHLORIDE [Suspect]
     Indication: SMALL CELL LUNG CANCER STAGE UNSPECIFIED
     Dosage: 35MG PER DAY
     Route: 042
     Dates: start: 20031027, end: 20031031
  2. SODIUM BICARBONATE [Concomitant]
     Dates: start: 20030604, end: 20031121
  3. MECOBALAMIN [Concomitant]
     Dates: start: 20030117, end: 20031121
  4. LOXOPROFEN SODIUM [Concomitant]
     Dates: start: 20031026, end: 20031121
  5. TROXIPIDE [Concomitant]
     Dates: start: 20031026, end: 20031121

REACTIONS (3)
  - LUNG NEOPLASM MALIGNANT [None]
  - MALIGNANT NEOPLASM PROGRESSION [None]
  - NEUTROPENIA [None]
